FAERS Safety Report 9476651 (Version 2)
Quarter: 2013Q3

REPORT INFORMATION
  Report Type: Spontaneous
  Country: US (occurrence: US)
  Receive Date: 20130826
  Receipt Date: 20130826
  Transmission Date: 20140515
  Serious: No
  Sender: FDA-Public Use
  Company Number: US-BRISTOL-MYERS SQUIBB COMPANY-17384108

PATIENT
  Sex: Male

DRUGS (1)
  1. KENALOG-10 [Suspect]
     Dates: start: 20130207

REACTIONS (4)
  - Pain in extremity [Unknown]
  - Paraesthesia [Unknown]
  - Rash pruritic [Unknown]
  - Back disorder [Unknown]
